FAERS Safety Report 25220908 (Version 1)
Quarter: 2025Q2

REPORT INFORMATION
  Report Type: Spontaneous
  Country: US (occurrence: US)
  Receive Date: 20250421
  Receipt Date: 20250421
  Transmission Date: 20250717
  Serious: Yes (Other)
  Sender: TEVA
  Company Number: US-TEVA-VS-3321711

PATIENT
  Age: 35 Year
  Sex: Female

DRUGS (1)
  1. COPAXONE [Suspect]
     Active Substance: GLATIRAMER ACETATE
     Indication: Multiple sclerosis
     Route: 065

REACTIONS (6)
  - Blindness [Unknown]
  - Gait disturbance [Unknown]
  - Speech disorder [Unknown]
  - Dysphagia [Unknown]
  - Maternal exposure timing unspecified [Unknown]
  - Live birth [Unknown]

NARRATIVE: CASE EVENT DATE: 20171101
